FAERS Safety Report 14304504 (Version 1)
Quarter: 2017Q4

REPORT INFORMATION
  Report Type: Spontaneous
  Country: JP (occurrence: JP)
  Receive Date: 20171219
  Receipt Date: 20171219
  Transmission Date: 20180321
  Serious: Yes (Hospitalization, Other)
  Sender: FDA-Public Use
  Company Number: JP-OTSUKA-03100-JPN-07-0357

PATIENT
  Age: 11 Year
  Sex: Female

DRUGS (9)
  1. RISPERDAL [Concomitant]
     Active Substance: RISPERIDONE
     Route: 048
     Dates: start: 20061004, end: 20061113
  2. TEGRETOL [Concomitant]
     Active Substance: CARBAMAZEPINE
     Dosage: 100 MG, BID
     Route: 048
     Dates: start: 19980303
  3. ABILIFY [Suspect]
     Active Substance: ARIPIPRAZOLE
     Dosage: 3 MG, QD
     Route: 048
     Dates: start: 20061004, end: 20061112
  4. DEPAKENE [Concomitant]
     Active Substance: VALPROIC ACID
     Dosage: 300 MG, BID
     Route: 048
     Dates: start: 20070124
  5. VALPROATE SODIUM. [Concomitant]
     Active Substance: VALPROATE SODIUM
     Dosage: DRUG WAS ALSO TAKEN FROM UNKNOWN TO 23-JAN-2007 ,400 MG, ORAL.
     Route: 048
     Dates: end: 20070123
  6. RISPERDAL [Concomitant]
     Active Substance: RISPERIDONE
     Route: 048
     Dates: end: 20061003
  7. DEPAKENE [Concomitant]
     Active Substance: VALPROIC ACID
     Route: 048
     Dates: end: 20070123
  8. ABILIFY [Suspect]
     Active Substance: ARIPIPRAZOLE
     Route: 048
     Dates: start: 20061113, end: 20070216
  9. CARBAMAZEPINE. [Concomitant]
     Active Substance: CARBAMAZEPINE
     Dosage: 200 MG, UNK
     Route: 048
     Dates: start: 19980303

REACTIONS (1)
  - Electroencephalogram abnormal [Recovered/Resolved]

NARRATIVE: CASE EVENT DATE: 20070124
